FAERS Safety Report 5840983-6 (Version None)
Quarter: 2008Q3

REPORT INFORMATION
  Report Type: 
  Country: None (occurrence: None)
  Receive Date: 20080811
  Receipt Date: 20080801
  Transmission Date: 20090109
  Serious: Yes (Other)
  Sender: FDA-Public Use
  Company Number: TR-ABBOTT-08P-161-0459997-00

PATIENT
  Age: 18 Year
  Sex: Male
  Weight: 68 kg

DRUGS (1)
  1. TARKA [Suspect]
     Indication: DRUG USE FOR UNKNOWN INDICATION
     Route: 048
     Dates: start: 20080629, end: 20080629

REACTIONS (3)
  - ATRIOVENTRICULAR BLOCK COMPLETE [None]
  - NODAL RHYTHM [None]
  - SUICIDE ATTEMPT [None]
